FAERS Safety Report 15580501 (Version 1)
Quarter: 2018Q4

REPORT INFORMATION
  Report Type: Report from Study
  Country: US (occurrence: US)
  Receive Date: 20181102
  Receipt Date: 20181102
  Transmission Date: 20190205
  Serious: Yes (Hospitalization)
  Sender: FDA-Public Use
  Company Number: US-ACTELION-A-US2017-158089

PATIENT
  Age: 55 Year
  Sex: Female

DRUGS (12)
  1. ASPIRIN. [Concomitant]
     Active Substance: ASPIRIN
     Dosage: UNK
     Dates: start: 20160401
  2. LEVOTHYROXINE. [Concomitant]
     Active Substance: LEVOTHYROXINE
     Dosage: UNK
     Dates: start: 20151210
  3. OMEPRAZOLE. [Concomitant]
     Active Substance: OMEPRAZOLE
     Dosage: UNK
     Dates: start: 20160701
  4. GABAPENTIN. [Concomitant]
     Active Substance: GABAPENTIN
     Dosage: UNK
     Dates: start: 20150309
  5. MOFETILI MYCOPHENOLAS [Concomitant]
     Active Substance: MYCOPHENOLATE MOFETIL\MYCOPHENOLATE MOFETIL HYDROCHLORIDE
     Dosage: UNK
     Dates: start: 20131024
  6. DILTIAZEM XR [Concomitant]
     Active Substance: DILTIAZEM
     Dosage: UNK
     Dates: start: 20160630
  7. TADALAFIL. [Concomitant]
     Active Substance: TADALAFIL
     Dosage: UNK
     Dates: start: 20120728
  8. FUROSEMIDE. [Concomitant]
     Active Substance: FUROSEMIDE
     Dosage: UNK
     Dates: start: 20120728
  9. UPTRAVI [Suspect]
     Active Substance: SELEXIPAG
     Indication: PULMONARY HYPERTENSION
     Dosage: 800 MCG, BID
     Route: 048
     Dates: start: 20160609
  10. AMBRISENTAN [Concomitant]
     Active Substance: AMBRISENTAN
     Dosage: UNK
     Dates: start: 20120728
  11. PLAQUENIL [Concomitant]
     Active Substance: HYDROXYCHLOROQUINE SULFATE
     Dosage: UNK
     Dates: start: 20131024
  12. METOLAZONE. [Concomitant]
     Active Substance: METOLAZONE

REACTIONS (14)
  - Chest pain [Unknown]
  - Right ventricular enlargement [Unknown]
  - Brain natriuretic peptide increased [Unknown]
  - Bradycardia [Unknown]
  - Polyuria [Recovering/Resolving]
  - Hypotension [Unknown]
  - Atrial septal defect [Unknown]
  - Pulmonary hypertension [Unknown]
  - Right ventricular failure [Recovered/Resolved]
  - Presyncope [Recovered/Resolved]
  - Dyspnoea [Unknown]
  - Product dose omission [Unknown]
  - Right atrial enlargement [Unknown]
  - Fatigue [Unknown]

NARRATIVE: CASE EVENT DATE: 20170616
